FAERS Safety Report 4301957-X (Version None)
Quarter: 2004Q1

REPORT INFORMATION
  Report Type: 
  Country: None (occurrence: None)
  Receive Date: 20040220
  Receipt Date: 20040203
  Transmission Date: 20041129
  Serious: No
  Sender: FDA-Public Use
  Company Number: 2004AP00004

PATIENT
  Age: 46 Year
  Sex: Female

DRUGS (4)
  1. IRESSA [Suspect]
     Indication: LUNG ADENOCARCINOMA
     Dosage: 250 MG DAILY PO
     Route: 048
     Dates: start: 20031008
  2. CISPLATIN [Concomitant]
  3. VINDESINE SULFATE [Concomitant]
  4. RADIATION THERAPY [Concomitant]

REACTIONS (3)
  - AMENORRHOEA [None]
  - HYPERLIPIDAEMIA [None]
  - MENSTRUATION IRREGULAR [None]
